FAERS Safety Report 16762106 (Version 1)
Quarter: 2019Q3

REPORT INFORMATION
  Report Type: Spontaneous
  Country: GB (occurrence: GB)
  Receive Date: 20190830
  Receipt Date: 20190830
  Transmission Date: 20191005
  Serious: Yes (Other)
  Sender: FDA-Public Use
  Company Number: PHHY2019GB199058

PATIENT
  Age: 16 Year
  Sex: Female
  Weight: 64.5 kg

DRUGS (1)
  1. METHOTREXATE. [Suspect]
     Active Substance: METHOTREXATE
     Indication: PRODUCT USED FOR UNKNOWN INDICATION
     Dosage: 25 MG, UNK
     Route: 058

REACTIONS (3)
  - Chest discomfort [Recovered/Resolved]
  - Lip swelling [Recovered/Resolved]
  - Rash pruritic [Recovered/Resolved]
